FAERS Safety Report 5633839-5 (Version None)
Quarter: 2008Q1

REPORT INFORMATION
  Report Type: 
  Country: None (occurrence: None)
  Receive Date: 20080221
  Receipt Date: 20080213
  Transmission Date: 20080703
  Serious: Yes (Life-Threatening, Hospitalization, Disabling)
  Sender: FDA-Public Use
  Company Number: US-GENENTECH-253847

PATIENT
  Sex: Male
  Weight: 108.84 kg

DRUGS (14)
  1. PLACEBO [Suspect]
     Indication: NON-SMALL CELL LUNG CANCER
     Dosage: 150 MG, QD
     Route: 048
     Dates: start: 20071009
  2. BEVACIZUMAB [Suspect]
     Indication: NON-SMALL CELL LUNG CANCER
     Dosage: 1825 MG, Q3W
     Route: 042
     Dates: start: 20070717
  3. CARBOPLATIN [Concomitant]
     Indication: NON-SMALL CELL LUNG CANCER
     Dosage: UNK, Q3W
     Route: 042
     Dates: start: 20070717
  4. GEMZAR [Concomitant]
     Indication: NON-SMALL CELL LUNG CANCER
     Dosage: UNK, Q3W
     Route: 042
     Dates: start: 20070717
  5. ALPRAZOLAM [Concomitant]
     Indication: DRUG USE FOR UNKNOWN INDICATION
  6. AZTREONAM [Concomitant]
     Indication: DRUG USE FOR UNKNOWN INDICATION
  7. CHANTIX [Concomitant]
     Indication: DRUG USE FOR UNKNOWN INDICATION
  8. COMBIVENT [Concomitant]
     Indication: DRUG USE FOR UNKNOWN INDICATION
  9. HYDROCHLOROTHIAZIDE [Concomitant]
     Indication: DRUG USE FOR UNKNOWN INDICATION
  10. LIPITOR [Concomitant]
     Indication: DRUG USE FOR UNKNOWN INDICATION
  11. LISINOPRIL [Concomitant]
     Indication: DRUG USE FOR UNKNOWN INDICATION
  12. NASACORT [Concomitant]
     Indication: DRUG USE FOR UNKNOWN INDICATION
  13. PRILOSEC [Concomitant]
     Indication: DRUG USE FOR UNKNOWN INDICATION
  14. VANCOMYCIN [Concomitant]
     Indication: DRUG USE FOR UNKNOWN INDICATION

REACTIONS (1)
  - SINUS ARRHYTHMIA [None]
